FAERS Safety Report 11042847 (Version 3)
Quarter: 2020Q4

REPORT INFORMATION
  Report Type: Spontaneous
  Country: GB (occurrence: GB)
  Receive Date: 20150417
  Receipt Date: 20201007
  Transmission Date: 20210113
  Serious: Yes (Hospitalization, Other)
  Sender: FDA-Public Use
  Company Number: GB-AUROBINDO-AUR-APL-2015-03298

PATIENT
  Age: 37 Year
  Sex: Female

DRUGS (3)
  1. EFAVIRENZ. [Suspect]
     Active Substance: EFAVIRENZ
     Indication: GENITAL HERPES
     Dosage: UNK
     Route: 065
     Dates: start: 200403
  2. TENOFOVIR DISOPROXIL [Suspect]
     Active Substance: TENOFOVIR DISOPROXIL
     Indication: GENITAL HERPES
     Dosage: UNK
     Route: 065
     Dates: start: 200403
  3. LAMIVUDINE. [Suspect]
     Active Substance: LAMIVUDINE
     Indication: GENITAL HERPES
     Dosage: UNK
     Route: 065
     Dates: start: 200403

REACTIONS (11)
  - Haemoglobin decreased [Recovered/Resolved]
  - Anaemia [Recovered/Resolved]
  - Condition aggravated [Unknown]
  - Angioedema [Recovered/Resolved]
  - Pruritus [Recovered/Resolved]
  - Swelling face [Recovered/Resolved]
  - CD4 lymphocytes increased [Unknown]
  - Peripheral swelling [Unknown]
  - Castleman^s disease [Recovered/Resolved]
  - Haemolysis [Unknown]
  - Viral load decreased [Unknown]

NARRATIVE: CASE EVENT DATE: 200408
